FAERS Safety Report 10205614 (Version 3)
Quarter: 2015Q1

REPORT INFORMATION
  Report Type: Spontaneous
  Country: US (occurrence: US)
  Receive Date: 20140529
  Receipt Date: 20150214
  Transmission Date: 20150720
  Serious: Yes (Other)
  Sender: FDA-Public Use
  Company Number: PHEH2014US010678

PATIENT
  Age: 67 Year
  Sex: Female
  Weight: 63 kg

DRUGS (16)
  1. BUTALBITAL, ACETAMINOPHEN, AND CAFFEINE [Concomitant]
     Active Substance: ACETAMINOPHEN\BUTALBITAL\CAFFEINE
     Dosage: 1 OR 2 DF EVERY 4 HOURS AS NEEDED
     Route: 048
  2. VITAMIN D [Concomitant]
     Active Substance: CHOLECALCIFEROL
     Dosage: 1 DF, EVERY DAY
     Route: 048
  3. XOPENEX [Concomitant]
     Active Substance: LEVALBUTEROL HYDROCHLORIDE
     Dosage: 2 PUFFS, Q6H
     Route: 055
  4. LOSARTAN POTASSIUM. [Suspect]
     Active Substance: LOSARTAN POTASSIUM
     Indication: HYPERTENSION
     Dosage: 25 MG, DAILY
     Dates: start: 20140217, end: 20140422
  5. CYCLOBENZAPRIN HCL [Concomitant]
     Dosage: 1 DF, 1-2 TIMES EVERY DAY
     Route: 048
  6. QVAR [Concomitant]
     Active Substance: BECLOMETHASONE DIPROPIONATE
     Dosage: 2 PUFFS , BID
     Route: 055
  7. THEOPHYLLINE ANHYDROUS. [Concomitant]
     Active Substance: THEOPHYLLINE ANHYDROUS
     Dosage: 2 DF, BID
     Route: 048
  8. NAPROXEN. [Concomitant]
     Active Substance: NAPROXEN
     Dosage: 1 DF, BID
     Route: 048
  9. DIPHENHYDRAMIN HCL [Concomitant]
     Dosage: 1 DF, BID AS NEEDED
     Route: 048
  10. VITAMIN E [Concomitant]
     Active Substance: .ALPHA.-TOCOPHEROL
     Dosage: 1 DF, EVERY DAY
     Route: 048
  11. VITAMIN C [Concomitant]
     Active Substance: ASCORBIC ACID
     Dosage: 1 DF, EVERY DAY
     Route: 048
  12. TOBI PODHALER [Suspect]
     Active Substance: TOBRAMYCIN
     Indication: PRODUCT USED FOR UNKNOWN INDICATION
     Dosage: 112 MG, Q12H (4 CAPSULES OF 28 MG FOR 28 DAYS)
     Route: 055
  13. ASPIRIN. [Concomitant]
     Active Substance: ASPIRIN
     Dosage: 1 DF, EVERY DAY
     Route: 048
  14. OMEPRAZOLE. [Concomitant]
     Active Substance: OMEPRAZOLE
     Dosage: 1 DF, QD BEFORE MEAL
     Route: 048
  15. IPRATROPIUM BROMIDE. [Concomitant]
     Active Substance: IPRATROPIUM BROMIDE
     Dosage: 2 SPRAY 2-3 TIMES EVERY DAY IN EACH NOSTRIL
     Route: 045
  16. OXYGEN. [Concomitant]
     Active Substance: OXYGEN
     Dosage: 2-3 L, QD
     Route: 045

REACTIONS (8)
  - Heart rate increased [Unknown]
  - Cough [Unknown]
  - Rhonchi [Unknown]
  - Blood pressure increased [Unknown]
  - Peripheral swelling [Unknown]
  - Cardiac septal defect residual shunt [Unknown]
  - Wheezing [Unknown]
  - Respiratory rate increased [Unknown]

NARRATIVE: CASE EVENT DATE: 20140303
